FAERS Safety Report 6222228-0 (Version None)
Quarter: 2009Q2

REPORT INFORMATION
  Report Type: 
  Country: None (occurrence: None)
  Receive Date: 20090611
  Receipt Date: 20090602
  Transmission Date: 20091009
  Serious: Yes (Hospitalization, Other)
  Sender: FDA-Public Use
  Company Number: PHHY2008CA32617

PATIENT
  Sex: Male

DRUGS (4)
  1. DIOVAN [Suspect]
     Indication: BLOOD PRESSURE
     Dosage: 80 MG/DAY
     Route: 048
     Dates: start: 20081211, end: 20081218
  2. ADALAT CC [Concomitant]
     Dosage: 30 MG
  3. ALTACE [Concomitant]
     Indication: HYPERTENSION
  4. BETA BLOCKING AGENTS [Concomitant]
     Indication: HYPERTENSION

REACTIONS (7)
  - CATHETER PLACEMENT [None]
  - CHEST DISCOMFORT [None]
  - CHEST PAIN [None]
  - FEELING HOT [None]
  - HYPERTENSION [None]
  - MYOCARDIAL INFARCTION [None]
  - PALLOR [None]
